FAERS Safety Report 9777950 (Version 1)
Quarter: 2013Q4

REPORT INFORMATION
  Report Type: Spontaneous
  Country: IT (occurrence: IT)
  Receive Date: 20131223
  Receipt Date: 20131223
  Transmission Date: 20140711
  Serious: Yes (Hospitalization)
  Sender: FDA-Public Use
  Company Number: IT-BRISTOL-MYERS SQUIBB COMPANY-19913151

PATIENT
  Age: 84 Year
  Sex: Female

DRUGS (7)
  1. COUMADIN TABS 5 MG [Suspect]
     Route: 048
     Dates: start: 20130820, end: 20130928
  2. LASIX [Concomitant]
     Dosage: TABS
     Route: 048
     Dates: start: 20130820, end: 20130928
  3. CARDURA [Concomitant]
     Dosage: TABS
     Route: 048
     Dates: start: 20130820, end: 20130928
  4. EUTIROX [Concomitant]
     Dosage: TABS
     Route: 048
     Dates: start: 20130820, end: 20130928
  5. CARDICOR [Concomitant]
     Dosage: TABS
     Route: 048
     Dates: start: 20130820, end: 20130928
  6. LANOXIN [Concomitant]
     Route: 048
     Dates: start: 20130820, end: 20130928
  7. LUVION [Concomitant]
     Dates: start: 20130820, end: 20130928

REACTIONS (5)
  - Clavicle fracture [Not Recovered/Not Resolved]
  - Head injury [Not Recovered/Not Resolved]
  - Humerus fracture [Not Recovered/Not Resolved]
  - Rib fracture [Not Recovered/Not Resolved]
  - Petechiae [Not Recovered/Not Resolved]
